FAERS Safety Report 4619089-X (Version None)
Quarter: 2005Q1

REPORT INFORMATION
  Report Type: 
  Country: None (occurrence: None)
  Receive Date: 20050318
  Receipt Date: 20050318
  Transmission Date: 20050727
  Serious: Yes (Hospitalization)
  Sender: FDA-Public Use
  Company Number: None

PATIENT
  Sex: Female
  Weight: 4.536 kg

DRUGS (1)
  1. AMOXIL [Suspect]
     Indication: PHARYNGOLARYNGEAL PAIN
     Dosage: PO
     Route: 048
     Dates: start: 20041128

REACTIONS (1)
  - RASH [None]
